FAERS Safety Report 9849921 (Version 3)
Quarter: 2014Q1

REPORT INFORMATION
  Report Type: Spontaneous
  Country: DE (occurrence: DE)
  Receive Date: 20140128
  Receipt Date: 20140310
  Transmission Date: 20141002
  Serious: Yes (Life-Threatening, Hospitalization, Other)
  Sender: FDA-Public Use
  Company Number: DE-JNJFOC-20131210792

PATIENT
  Age: 68 Year
  Sex: Male
  Weight: 99.77 kg

DRUGS (9)
  1. XARELTO [Suspect]
     Indication: EMBOLISM VENOUS
     Route: 048
  2. XARELTO [Suspect]
     Indication: EMBOLISM VENOUS
     Route: 048
     Dates: start: 20130923, end: 20130927
  3. XARELTO [Suspect]
     Indication: PULMONARY EMBOLISM
     Route: 048
  4. XARELTO [Suspect]
     Indication: PULMONARY EMBOLISM
     Route: 048
     Dates: start: 20130923, end: 20130927
  5. HEPARIN [Concomitant]
     Route: 065
  6. OXYGEN [Concomitant]
     Dosage: 10 L/MIN
     Route: 065
  7. OXYGEN [Concomitant]
     Dosage: 12 L/MIN
     Route: 065
  8. UNACID [Concomitant]
     Route: 065
  9. KLACID (CLARITHROMYCIN) [Concomitant]
     Route: 065

REACTIONS (4)
  - Subdural haematoma [Recovering/Resolving]
  - Haemorrhage intracranial [Recovering/Resolving]
  - Circulatory collapse [Recovering/Resolving]
  - Fall [Recovering/Resolving]
